FAERS Safety Report 10047288 (Version 1)
Quarter: 2014Q1

REPORT INFORMATION
  Report Type: Spontaneous
  Country: US (occurrence: US)
  Receive Date: 20140331
  Receipt Date: 20140331
  Transmission Date: 20141002
  Serious: No
  Sender: FDA-Public Use
  Company Number: US-MYLANLABS-2013S1027850

PATIENT
  Age: 87 Year
  Sex: Female
  Weight: 82.56 kg

DRUGS (2)
  1. FENTANYL TRANSDERMAL SYSTEM [Suspect]
     Indication: OSTEOPOROSIS
     Dosage: Q3D
     Route: 062
     Dates: start: 201310
  2. FENTANYL TRANSDERMAL SYSTEM [Suspect]
     Indication: PAIN
     Dosage: Q3D
     Route: 062
     Dates: start: 201310

REACTIONS (3)
  - Drug ineffective [Not Recovered/Not Resolved]
  - Pain [Not Recovered/Not Resolved]
  - Aggression [Not Recovered/Not Resolved]
